FAERS Safety Report 12051204 (Version 2)
Quarter: 2016Q2

REPORT INFORMATION
  Report Type: Spontaneous
  Country: TR (occurrence: TR)
  Receive Date: 20160209
  Receipt Date: 20160404
  Transmission Date: 20160815
  Serious: Yes (Other)
  Sender: FDA-Public Use
  Company Number: PHHY2016TR016002

PATIENT
  Sex: Female
  Weight: 4.11 kg

DRUGS (2)
  1. ZOFER [Suspect]
     Active Substance: ONDANSETRON HYDROCHLORIDE
     Indication: FOETAL EXPOSURE DURING PREGNANCY
     Dosage: UNK (MATERNAL DOSE: 4 MG PER DAY LATER 5 TO 6 TH MONTH DURING PREGNANCY)
     Route: 064
  2. ZOFRAN [Suspect]
     Active Substance: ONDANSETRON HYDROCHLORIDE
     Indication: FOETAL EXPOSURE DURING PREGNANCY
     Dosage: UNK (MATERNAL DOSE: 8 MG PER DAY FOR 3 TO 4 MONTHS)
     Route: 064

REACTIONS (3)
  - Biotinidase deficiency [Recovered/Resolved]
  - Foetal exposure during pregnancy [Unknown]
  - Cerebral disorder [Recovered/Resolved]
